FAERS Safety Report 17319688 (Version 2)
Quarter: 2020Q1

REPORT INFORMATION
  Report Type: Spontaneous
  Country: US (occurrence: US)
  Receive Date: 20200125
  Receipt Date: 20200227
  Transmission Date: 20200409
  Serious: Yes (Other)
  Sender: FDA-Public Use
  Company Number: US-UNITED THERAPEUTICS-UNT-2020-001126

PATIENT
  Age: 60 Year
  Sex: Female
  Weight: 96.15 kg

DRUGS (3)
  1. AMLODIPINE [Concomitant]
     Active Substance: AMLODIPINE BESYLATE
     Indication: PRODUCT USED FOR UNKNOWN INDICATION
     Dosage: UNK
     Route: 065
  2. ADEMPAS [Concomitant]
     Active Substance: RIOCIGUAT
     Indication: PRODUCT USED FOR UNKNOWN INDICATION
     Dosage: UNK
     Route: 065
  3. TYVASO [Suspect]
     Active Substance: TREPROSTINIL
     Indication: PULMONARY ARTERIAL HYPERTENSION
     Dosage: 60-120 ?G, QID
     Dates: start: 20180904

REACTIONS (9)
  - Road traffic accident [Unknown]
  - Eructation [Recovered/Resolved]
  - Feeling abnormal [Recovered/Resolved]
  - Chest discomfort [Recovered/Resolved]
  - Abdominal distension [Recovered/Resolved]
  - Intervertebral disc injury [Unknown]
  - Off label use [Unknown]
  - Abdominal discomfort [Recovered/Resolved]
  - Hepatomegaly [Recovered/Resolved]

NARRATIVE: CASE EVENT DATE: 20180904
